FAERS Safety Report 9732522 (Version 1)
Quarter: 2013Q4

REPORT INFORMATION
  Report Type: Spontaneous
  Country: US (occurrence: US)
  Receive Date: 20131205
  Receipt Date: 20131205
  Transmission Date: 20140711
  Serious: No
  Sender: FDA-Public Use
  Company Number: US-PFIZER INC-2013346642

PATIENT
  Sex: Female

DRUGS (1)
  1. EFFEXOR XR [Suspect]
     Dosage: 75 MG, 2X/DAY

REACTIONS (11)
  - Drug withdrawal syndrome [Unknown]
  - Confusional state [Unknown]
  - Sensory disturbance [Unknown]
  - Balance disorder [Unknown]
  - Muscle spasms [Unknown]
  - Feeling abnormal [Unknown]
  - Anxiety [Unknown]
  - Irritability [Unknown]
  - Dizziness [Unknown]
  - Pain [Unknown]
  - Agitation [Unknown]
